FAERS Safety Report 7777023-8 (Version None)
Quarter: 2011Q3

REPORT INFORMATION
  Report Type: 
  Country: None (occurrence: None)
  Receive Date: 20110926
  Receipt Date: 20110926
  Transmission Date: 20111222
  Serious: Yes (Hospitalization)
  Sender: FDA-Public Use
  Company Number: None

PATIENT
  Age: 41 Year
  Sex: Female
  Weight: 68.946 kg

DRUGS (1)
  1. CIMZIA [Suspect]
     Indication: CROHN'S DISEASE
     Dosage: 200MG
     Route: 030
     Dates: start: 20110629, end: 20110824

REACTIONS (9)
  - OEDEMA PERIPHERAL [None]
  - PAIN IN EXTREMITY [None]
  - FULL BLOOD COUNT ABNORMAL [None]
  - PALPITATIONS [None]
  - APHAGIA [None]
  - BLOOD POTASSIUM DECREASED [None]
  - BLOOD ELECTROLYTES DECREASED [None]
  - MALNUTRITION [None]
  - ARTHRALGIA [None]
